FAERS Safety Report 8232309-8 (Version None)
Quarter: 2012Q1

REPORT INFORMATION
  Report Type: 
  Country: None (occurrence: None)
  Receive Date: 20120323
  Receipt Date: 20120315
  Transmission Date: 20120608
  Serious: Yes (Other)
  Sender: FDA-Public Use
  Company Number: DE-B.I. PHARMACEUTICALS,INC./RIDGEFIELD-2012-DE-00756DE

PATIENT
  Age: 77 Year
  Sex: Male
  Weight: 75 kg

DRUGS (8)
  1. THORASEMID [Concomitant]
  2. METOPROLOL SUCCINATE [Concomitant]
  3. PANTOPRAZOLE [Concomitant]
  4. ALLOPURINOL [Concomitant]
  5. EPLERENON [Concomitant]
  6. PRADAXA [Suspect]
     Indication: ATRIAL FIBRILLATION
     Dosage: 220 MG
     Dates: start: 20120306, end: 20120312
  7. LEVOTHYROXINE SODIUM [Concomitant]
  8. ASPIRIN [Concomitant]

REACTIONS (1)
  - LIVER DISORDER [None]
